FAERS Safety Report 19094082 (Version 1)
Quarter: 2021Q2

REPORT INFORMATION
  Report Type: Spontaneous
  Country: US (occurrence: US)
  Receive Date: 20210405
  Receipt Date: 20210405
  Transmission Date: 20210717
  Serious: No
  Sender: FDA-Public Use
  Company Number: US-CELGENEUS-USA-20210307552

PATIENT
  Age: 25 Year
  Sex: Male
  Weight: 70 kg

DRUGS (5)
  1. LUSPATERCEPT. [Suspect]
     Active Substance: LUSPATERCEPT
     Indication: THALASSAEMIA
     Dosage: 70 MILLIGRAM
     Route: 058
     Dates: start: 20210304
  2. VITAMIN D [Concomitant]
     Active Substance: VITAMIN D NOS
     Indication: PRODUCT USED FOR UNKNOWN INDICATION
     Route: 065
  3. FOLIC ACID. [Concomitant]
     Active Substance: FOLIC ACID
     Indication: PRODUCT USED FOR UNKNOWN INDICATION
     Route: 065
  4. TUMS [Concomitant]
     Active Substance: CALCIUM CARBONATE
     Indication: PRODUCT USED FOR UNKNOWN INDICATION
     Route: 065
  5. LUSPATERCEPT. [Suspect]
     Active Substance: LUSPATERCEPT
     Indication: OFF LABEL USE
     Dosage: 70 MILLIGRAM
     Route: 058
     Dates: start: 20210325

REACTIONS (1)
  - Injection site pain [Unknown]

NARRATIVE: CASE EVENT DATE: 202103
